FAERS Safety Report 6831506-3 (Version None)
Quarter: 2010Q3

REPORT INFORMATION
  Report Type: 
  Country: None (occurrence: None)
  Receive Date: 20100712
  Receipt Date: 20100628
  Transmission Date: 20110219
  Serious: Yes (Other)
  Sender: FDA-Public Use
  Company Number: PHHY2010AT07098

PATIENT
  Age: 44 Year
  Sex: Female

DRUGS (1)
  1. ZOMETA [Suspect]
     Dosage: UNK
     Dates: start: 20050101

REACTIONS (3)
  - CHOROID NEOPLASM [None]
  - INTRAOCULAR MELANOMA [None]
  - VISUAL IMPAIRMENT [None]
